FAERS Safety Report 4433509-5 (Version None)
Quarter: 2004Q3

REPORT INFORMATION
  Report Type: 
  Country: None (occurrence: None)
  Receive Date: 20040824
  Receipt Date: 20040809
  Transmission Date: 20050211
  Serious: Yes (Hospitalization)
  Sender: FDA-Public Use
  Company Number: 04P-056-0269969-00

PATIENT
  Age: 68 Year
  Sex: Female
  Weight: 139 kg

DRUGS (13)
  1. HUMIRA [Suspect]
     Indication: RHEUMATOID ARTHRITIS
     Dosage: 40 MG, 1 IN 2 WK, SUBCUTANEOUS
     Route: 058
     Dates: start: 20031115, end: 20031226
  2. HUMIRA [Suspect]
     Indication: RHEUMATOID ARTHRITIS
     Dosage: 40 MG, 1 IN 2 WK, SUBCUTANEOUS
     Route: 058
     Dates: start: 20040128
  3. LEVOTHYROXINE SODIUM [Concomitant]
  4. PREDNISONE [Concomitant]
  5. METHOTREXATE [Concomitant]
  6. AUROTIOPROL [Concomitant]
  7. SULFASALAZINE [Concomitant]
  8. FOLIC ACID [Concomitant]
  9. ACETAMINOPHEN AND CODEINE PHOSPHATE [Concomitant]
  10. KETOPROFEN [Concomitant]
  11. OMEPRAZOLE [Concomitant]
  12. DIOSMIN [Concomitant]
  13. SECTRAL [Concomitant]

REACTIONS (2)
  - ABDOMINAL HERNIA [None]
  - SIGMOIDITIS [None]
